FAERS Safety Report 4342422-3 (Version None)
Quarter: 2004Q2

REPORT INFORMATION
  Report Type: 
  Country: None (occurrence: None)
  Receive Date: 20040420
  Receipt Date: 20040420
  Transmission Date: 20050107
  Serious: No
  Sender: FDA-Public Use
  Company Number: None

PATIENT
  Age: 71 Year
  Sex: Female
  Weight: 60.3284 kg

DRUGS (8)
  1. REMICADE [Suspect]
     Indication: RHEUMATOID ARTHRITIS
     Dosage: 3MG/KG Q 8 WKS IV
     Route: 042
     Dates: start: 20020301
  2. PREMARIN [Concomitant]
  3. PROTONIX [Concomitant]
  4. ENALAPRIL MALEATE [Concomitant]
  5. MAXZIDE [Concomitant]
  6. METHOTREXATE [Concomitant]
  7. LIPITOR [Concomitant]
  8. SALSALATE [Concomitant]

REACTIONS (1)
  - NON-HODGKIN'S LYMPHOMA [None]
